FAERS Safety Report 15255718 (Version 1)
Quarter: 2018Q3

REPORT INFORMATION
  Report Type: Spontaneous
  Country: US (occurrence: US)
  Receive Date: 20180718
  Receipt Date: 20180718
  Transmission Date: 20181010
  Serious: Yes (Hospitalization)
  Sender: FDA-Public Use
  Company Number: None

PATIENT
  Age: 78 Year
  Sex: Female
  Weight: 52.39 kg

DRUGS (4)
  1. SPS 15 GRAM X 1 PO IN ER AT 1335 [Concomitant]
  2. SULFAMETHOXAZOLE/TRIMETHOPRIM [Suspect]
     Active Substance: SULFAMETHOXAZOLE\TRIMETHOPRIM
     Indication: INFECTION
     Route: 048
     Dates: start: 20180710, end: 20180717
  3. SPS 30 GM X1 PO ON MS FLOOR AT 1800 [Concomitant]
  4. SPS 15 GRAM X 1 PO AT NH [Concomitant]

REACTIONS (4)
  - Blood pressure systolic increased [None]
  - Respiratory rate increased [None]
  - Heart rate decreased [None]
  - Blood potassium increased [None]

NARRATIVE: CASE EVENT DATE: 20180717
